FAERS Safety Report 24563148 (Version 1)
Quarter: 2024Q4

REPORT INFORMATION
  Report Type: Spontaneous
  Country: US (occurrence: US)
  Receive Date: 20241030
  Receipt Date: 20241030
  Transmission Date: 20250115
  Serious: Yes (Death, Hospitalization, Other)
  Sender: APOTEX
  Company Number: US-APOTEX-2024AP017037

PATIENT
  Age: 24 Year
  Sex: Female

DRUGS (5)
  1. ALBUTEROL [Suspect]
     Active Substance: ALBUTEROL
     Indication: Product used for unknown indication
     Dosage: UNK
     Route: 065
  2. FAMOTIDINE [Suspect]
     Active Substance: FAMOTIDINE
     Indication: Product used for unknown indication
     Dosage: UNK
     Route: 065
  3. ONDANSETRON [Suspect]
     Active Substance: ONDANSETRON
     Indication: Product used for unknown indication
     Dosage: UNK
     Route: 065
  4. LORAZEPAM [Suspect]
     Active Substance: LORAZEPAM
     Indication: Product used for unknown indication
     Dosage: UNK
     Route: 065
  5. SCOPOLAMINE [Suspect]
     Active Substance: SCOPOLAMINE
     Indication: Product used for unknown indication
     Dosage: UNK
     Route: 065

REACTIONS (3)
  - Anticholinergic syndrome [Fatal]
  - Toxicity to various agents [Fatal]
  - Tachycardia [Fatal]
